FAERS Safety Report 11054639 (Version 1)
Quarter: 2015Q2

REPORT INFORMATION
  Report Type: Spontaneous
  Country: GB (occurrence: GB)
  Receive Date: 20150422
  Receipt Date: 20150422
  Transmission Date: 20150821
  Serious: Yes (Life-Threatening, Hospitalization)
  Sender: FDA-Public Use
  Company Number: GB-JNJFOC-2005106064

PATIENT
  Age: 43 Year
  Sex: Male

DRUGS (10)
  1. FOLIC ACID. [Suspect]
     Active Substance: FOLIC ACID
     Route: 048
  2. ACETYLSALICYLIC ACID [Suspect]
     Active Substance: ASPIRIN
     Indication: ILL-DEFINED DISORDER
     Dosage: DAILY DOSE QTY: 7.5 G (93.75 MG/KG)
     Route: 048
  3. PERINDOPRIL [Suspect]
     Active Substance: PERINDOPRIL
     Indication: ILL-DEFINED DISORDER
     Dosage: DAILY DOSE QTY: 120 MG (1.5 MG/KG)
     Route: 048
  4. CITALOPRAM [Suspect]
     Active Substance: CITALOPRAM HYDROBROMIDE
     Indication: ILL-DEFINED DISORDER
     Dosage: DAILY DOSE QTY: 280 MG (3.5 MG/KG)
     Route: 048
  5. AMLODIPINE [Suspect]
     Active Substance: AMLODIPINE BESYLATE
     Indication: ILL-DEFINED DISORDER
     Dosage: 56 TABLETS  OF 10 MG (TOTAL INGESTION 560 MG, 7 MG/KG)
     Route: 048
  6. ALCOHOL. [Suspect]
     Active Substance: ALCOHOL
     Indication: PRODUCT USED FOR UNKNOWN INDICATION
     Route: 048
  7. PARACETAMOL [Suspect]
     Active Substance: ACETAMINOPHEN
     Route: 048
  8. FOLIC ACID. [Suspect]
     Active Substance: FOLIC ACID
     Indication: ILL-DEFINED DISORDER
     Dosage: DAILY DOSE TEXT: 30 TABLETS
     Route: 048
  9. PARACETAMOL [Suspect]
     Active Substance: ACETAMINOPHEN
     Indication: ILL-DEFINED DISORDER
     Dosage: DAILY DOSE QTY: 16 G (200 MG/KG)
     Route: 048
  10. FLUOXETINE HYDROCHLORIDE. [Suspect]
     Active Substance: FLUOXETINE HYDROCHLORIDE
     Indication: ILL-DEFINED DISORDER
     Dosage: DAILY DOSE QTY: 600 MG (7.5 MG/KG)
     Route: 048

REACTIONS (6)
  - Intentional overdose [Recovered/Resolved]
  - Hypokalaemia [Recovered/Resolved]
  - Urine output decreased [Recovered/Resolved]
  - Hypotension [Recovered/Resolved]
  - Metabolic acidosis [Recovered/Resolved]
  - Coma scale abnormal [Recovered/Resolved]
